FAERS Safety Report 9556841 (Version 3)
Quarter: 2014Q1

REPORT INFORMATION
  Report Type: Spontaneous
  Country: US (occurrence: US)
  Receive Date: 20130926
  Receipt Date: 20140210
  Transmission Date: 20141002
  Serious: No
  Sender: FDA-Public Use
  Company Number: US-PFIZER INC-2013275408

PATIENT
  Age: 62 Year
  Sex: Female

DRUGS (7)
  1. CELEBREX [Suspect]
     Dosage: UNK
  2. DETROL LA [Suspect]
     Dosage: UNK
  3. DESYREL [Suspect]
     Dosage: UNK
  4. ULTRAM [Suspect]
     Dosage: UNK
  5. BENADRYL [Suspect]
     Dosage: UNK
  6. PHENOBARB [Suspect]
     Dosage: UNK
  7. VITAMIN D [Suspect]
     Dosage: UNK

REACTIONS (1)
  - Drug hypersensitivity [Unknown]
